FAERS Safety Report 10036524 (Version 2)
Quarter: 2014Q2

REPORT INFORMATION
  Report Type: Report from Study
  Country: MX (occurrence: MX)
  Receive Date: 20140326
  Receipt Date: 20140501
  Transmission Date: 20141212
  Serious: Yes (Other)
  Sender: FDA-Public Use
  Company Number: PHHY2014MX036064

PATIENT
  Age: 58 Year
  Sex: Female

DRUGS (2)
  1. CO-DIOVAN [Suspect]
     Indication: HYPERTENSION
     Dosage: 1 TABLET (160/12.5 MG) DAILY
     Route: 048
     Dates: start: 200903
  2. SINTROM [Concomitant]
     Indication: ANTICOAGULANT THERAPY
     Dosage: UNK

REACTIONS (2)
  - Diabetes mellitus [Not Recovered/Not Resolved]
  - Blood cholesterol abnormal [Not Recovered/Not Resolved]
